FAERS Safety Report 8440268-8 (Version None)
Quarter: 2012Q2

REPORT INFORMATION
  Report Type: 
  Country: None (occurrence: None)
  Receive Date: 20120615
  Receipt Date: 20120612
  Transmission Date: 20120825
  Serious: Yes (Life-Threatening)
  Sender: FDA-Public Use
  Company Number: NL-PFIZER INC-2012142017

PATIENT
  Age: 56 Year
  Sex: Female
  Weight: 65 kg

DRUGS (3)
  1. CELEBREX [Suspect]
     Indication: ARTHRITIS
     Dosage: 200-300MG, UNK
     Dates: start: 19990210, end: 20120323
  2. METHOTREXATE SODIUM [Suspect]
     Dosage: 7.5 MG, WEEKLY
     Dates: start: 19990310, end: 20120323
  3. REMICADE [Suspect]
     Dosage: UNK MG/KG, UNK
     Dates: start: 19990210, end: 20120223

REACTIONS (1)
  - MYELODYSPLASTIC SYNDROME [None]
